FAERS Safety Report 7279473-5 (Version None)
Quarter: 2011Q1

REPORT INFORMATION
  Report Type: 
  Country: None (occurrence: None)
  Receive Date: 20110208
  Receipt Date: 20110126
  Transmission Date: 20110831
  Serious: No
  Sender: FDA-Public Use
  Company Number: US-BIOGENIDEC-2010BI036089

PATIENT
  Sex: Male

DRUGS (1)
  1. TYSABRI [Suspect]
     Indication: MULTIPLE SCLEROSIS
     Route: 042
     Dates: start: 20100818

REACTIONS (7)
  - FATIGUE [None]
  - GAIT DISTURBANCE [None]
  - RESTLESS LEGS SYNDROME [None]
  - LETHARGY [None]
  - HEADACHE [None]
  - BALANCE DISORDER [None]
  - PAIN IN EXTREMITY [None]
